FAERS Safety Report 10367171 (Version 1)
Quarter: 2014Q3

REPORT INFORMATION
  Report Type: Spontaneous
  Country: US (occurrence: US)
  Receive Date: 20140807
  Receipt Date: 20140807
  Transmission Date: 20150326
  Serious: Yes (Hospitalization, Disabling)
  Sender: FDA-Public Use
  Company Number: US-BRISTOL-MYERS SQUIBB COMPANY-21261961

PATIENT
  Age: 7 Decade
  Sex: Female

DRUGS (4)
  1. REMERON [Concomitant]
     Active Substance: MIRTAZAPINE
  2. SSRI [Concomitant]
     Active Substance: UNSPECIFIED INGREDIENT
  3. ABILIFY [Suspect]
     Active Substance: ARIPIPRAZOLE
  4. ABILIFY [Suspect]
     Active Substance: ARIPIPRAZOLE
     Route: 048

REACTIONS (4)
  - Poor quality sleep [Unknown]
  - Loss of consciousness [Unknown]
  - Somnolence [Unknown]
  - Agitation [Unknown]

NARRATIVE: CASE EVENT DATE: 201407
